FAERS Safety Report 5559424-1 (Version None)
Quarter: 2007Q4

REPORT INFORMATION
  Report Type: 
  Country: None (occurrence: None)
  Receive Date: 20071214
  Receipt Date: 20070927
  Transmission Date: 20080405
  Serious: No
  Sender: FDA-Public Use
  Company Number: US-ABBOTT-07P-163-0419239-00

PATIENT
  Sex: Female
  Weight: 76.726 kg

DRUGS (13)
  1. HUMIRA [Suspect]
     Indication: RHEUMATOID ARTHRITIS
     Route: 058
     Dates: start: 20050901, end: 20061101
  2. HUMIRA [Suspect]
     Route: 058
     Dates: start: 20061201, end: 20070201
  3. HUMIRA [Suspect]
     Route: 058
     Dates: start: 20070401, end: 20070701
  4. HUMIRA [Suspect]
     Route: 058
     Dates: start: 20070701, end: 20070801
  5. HUMIRA [Suspect]
     Route: 058
     Dates: start: 20070801, end: 20070915
  6. RABEPRAZOLE SODIUM [Concomitant]
     Indication: DRUG USE FOR UNKNOWN INDICATION
  7. METAMUCIL [Concomitant]
     Indication: DRUG USE FOR UNKNOWN INDICATION
  8. MYDRIN [Concomitant]
     Indication: DRUG USE FOR UNKNOWN INDICATION
  9. FLUTICASONE PROPIONATE [Concomitant]
     Indication: DRUG USE FOR UNKNOWN INDICATION
  10. MONTELUKAST SODIUM [Concomitant]
     Indication: DRUG USE FOR UNKNOWN INDICATION
  11. TENORIUM [Concomitant]
     Indication: DRUG USE FOR UNKNOWN INDICATION
  12. ALPRAZOLAM [Concomitant]
     Indication: DRUG USE FOR UNKNOWN INDICATION
  13. LOVASTATIN [Concomitant]
     Indication: BLOOD CHOLESTEROL INCREASED

REACTIONS (9)
  - BLADDER SPASM [None]
  - DIVERTICULITIS [None]
  - ESCHERICHIA INFECTION [None]
  - FATIGUE [None]
  - MUSCLE SPASMS [None]
  - PAIN [None]
  - URINARY TRACT INFECTION [None]
  - VAGINAL INFECTION [None]
  - VISION BLURRED [None]
